FAERS Safety Report 22243101 (Version 1)
Quarter: 2023Q2

REPORT INFORMATION
  Report Type: Spontaneous
  Country: US (occurrence: US)
  Receive Date: 20230424
  Receipt Date: 20230424
  Transmission Date: 20230721
  Serious: No
  Sender: FDA-Public Use
  Company Number: US-PFIZER INC-202300162124

PATIENT
  Age: 23 Year
  Sex: Female

DRUGS (2)
  1. DEPO-PROVERA [Suspect]
     Active Substance: MEDROXYPROGESTERONE ACETATE
     Dosage: DEPO-PROVERA FOR 3-4 YEARS
  2. DEPO-PROVERA [Suspect]
     Active Substance: MEDROXYPROGESTERONE ACETATE
     Dosage: 1ST SHOT IN FEB2023
     Dates: start: 202302

REACTIONS (1)
  - Injection site indentation [Unknown]

NARRATIVE: CASE EVENT DATE: 20230201
